FAERS Safety Report 15781898 (Version 2)
Quarter: 2019Q1

REPORT INFORMATION
  Report Type: Spontaneous
  Country: IT (occurrence: IT)
  Receive Date: 20190102
  Receipt Date: 20190107
  Transmission Date: 20190417
  Serious: Yes (Other)
  Sender: FDA-Public Use
  Company Number: IT-PFIZER INC-2018534017

PATIENT
  Age: 35 Year
  Sex: Male

DRUGS (7)
  1. CEFTRIAXONE SODIUM. [Suspect]
     Active Substance: CEFTRIAXONE SODIUM
     Indication: EVIDENCE BASED TREATMENT
     Dosage: 2 G, 2X/DAY
     Route: 042
     Dates: start: 2016
  2. FLUCONAZOLE. [Suspect]
     Active Substance: FLUCONAZOLE
     Indication: ACANTHAMOEBA INFECTION
     Dosage: 400 MG, DAILY
     Route: 048
     Dates: start: 20160630, end: 20170101
  3. FLUCONAZOLE. [Suspect]
     Active Substance: FLUCONAZOLE
     Dosage: 400 MG, 1X/DAY
     Route: 042
     Dates: start: 20160527
  4. SULFAMETHOXAZOLE/TRIMETHOPRIM [Suspect]
     Active Substance: SULFAMETHOXAZOLE\TRIMETHOPRIM
     Indication: ACANTHAMOEBA INFECTION
     Dosage: UNK (TRIMETHOPRIM/SULPHAMETHOXAZOLE 15/75 MG/KG/DAY)
     Route: 042
     Dates: start: 20160527, end: 20160716
  5. SULFAMETHOXAZOLE/TRIMETHOPRIM [Suspect]
     Active Substance: SULFAMETHOXAZOLE\TRIMETHOPRIM
     Dosage: UNK (TRIMETHOPRIM/SULPHAMETHOXAZOLE 8/40 MG/KG/DAY
     Route: 042
     Dates: start: 20160716, end: 201701
  6. MILTEFOSINE [Suspect]
     Active Substance: MILTEFOSINE
     Indication: ACANTHAMOEBA INFECTION
     Dosage: 50 MG, 3X/DAY
     Route: 048
     Dates: start: 20160527, end: 20160607
  7. METRONIDAZOLE. [Suspect]
     Active Substance: METRONIDAZOLE
     Indication: EVIDENCE BASED TREATMENT
     Dosage: 750 MG, 3X/DAY
     Route: 042
     Dates: start: 2016

REACTIONS (1)
  - Hyperkalaemia [Unknown]

NARRATIVE: CASE EVENT DATE: 2016
